FAERS Safety Report 8960285 (Version 1)
Quarter: 2012Q4

REPORT INFORMATION
  Report Type: 
  Country: TW (occurrence: TW)
  Receive Date: 20121211
  Receipt Date: 20121211
  Transmission Date: 20130627
  Serious: Yes (Hospitalization)
  Sender: FDA-Public Use
  Company Number: PHHY2012TW113194

PATIENT
  Age: 60 Year
  Sex: Male

DRUGS (8)
  1. FAMOTIDINE [Suspect]
     Indication: PEPTIC ULCER
     Route: 048
  2. ASPIRIN [Concomitant]
  3. LABETALOL [Concomitant]
  4. NIFEDIPINE [Concomitant]
  5. TERAZOSIN [Concomitant]
  6. METFORMIN [Concomitant]
  7. GLIMEPIRIDE [Concomitant]
  8. ACARBOSE [Concomitant]

REACTIONS (7)
  - Cerebral infarction [Recovered/Resolved]
  - Quadriparesis [Recovered/Resolved]
  - Dysarthria [Recovered/Resolved]
  - Dysphagia [Recovered/Resolved]
  - Blood creatine phosphokinase increased [Recovered/Resolved]
  - Troponin I increased [Recovered/Resolved]
  - Eosinophilia [Recovered/Resolved]
